FAERS Safety Report 16306555 (Version 4)
Quarter: 2019Q3

REPORT INFORMATION
  Report Type: Report from Study
  Country: KR (occurrence: KR)
  Receive Date: 20190513
  Receipt Date: 20190708
  Transmission Date: 20191004
  Serious: Yes (Hospitalization)
  Sender: FDA-Public Use
  Company Number: KR-OTSUKA-2019_017435

PATIENT
  Age: 28 Year
  Sex: Male

DRUGS (20)
  1. ARIPIPRAZOLE. [Suspect]
     Active Substance: ARIPIPRAZOLE
     Indication: SCHIZOPHRENIA
     Dosage: 5 MG, QD
     Route: 048
     Dates: start: 20190426, end: 20190429
  2. AMISULPRIDE [Concomitant]
     Active Substance: AMISULPRIDE
     Indication: PSYCHOTIC SYMPTOM
     Dosage: 400 MG, QD
     Route: 048
     Dates: start: 20150723, end: 20190427
  3. AMISULPRIDE [Concomitant]
     Active Substance: AMISULPRIDE
     Dosage: 200 MG, QD
     Route: 048
     Dates: start: 20190502, end: 20190504
  4. RIVOTRIL [Concomitant]
     Active Substance: CLONAZEPAM
     Indication: PROPHYLAXIS
     Dosage: 0.5 MG, QD
     Route: 048
     Dates: start: 20140718, end: 20190320
  5. DIAZEPAM. [Concomitant]
     Active Substance: DIAZEPAM
     Indication: PROPHYLAXIS
     Dosage: 1 MG, BID
     Route: 048
     Dates: start: 20150213, end: 201905
  6. RIVOTRIL [Concomitant]
     Active Substance: CLONAZEPAM
     Dosage: 0.5 MG, QD
     Route: 048
     Dates: start: 20190504, end: 20190508
  7. YOUNGPROMA [Concomitant]
     Indication: PROPHYLAXIS
     Dosage: 5 MG, QD
     Route: 048
     Dates: start: 20190307, end: 20190320
  8. PERIDOL [Concomitant]
     Active Substance: HALOPERIDOL
     Dosage: 1.5 MG, BID
     Route: 048
     Dates: start: 20190505, end: 20190512
  9. RIVOTRIL [Concomitant]
     Active Substance: CLONAZEPAM
     Dosage: 0.25 MG, QD
     Route: 048
     Dates: start: 20190321
  10. RIVOTRIL [Concomitant]
     Active Substance: CLONAZEPAM
     Dosage: 0.75 MG, QD
     Route: 048
     Dates: start: 20190508, end: 20190512
  11. YOUNGPROMA [Concomitant]
     Dosage: 2.5 MG, QD
     Route: 048
     Dates: start: 20190321, end: 20190505
  12. ARIPIPRAZOLE. [Suspect]
     Active Substance: ARIPIPRAZOLE
     Dosage: 2 MG, QD
     Route: 048
     Dates: start: 20190426, end: 20190429
  13. AMISULPRIDE [Concomitant]
     Active Substance: AMISULPRIDE
     Dosage: 200 MG, QD
     Route: 048
     Dates: start: 20190307, end: 20190427
  14. DIAZEPAM. [Concomitant]
     Active Substance: DIAZEPAM
     Dosage: 3 MG, QD
     Route: 048
     Dates: start: 20190505, end: 20190505
  15. AMISULPRIDE [Concomitant]
     Active Substance: AMISULPRIDE
     Dosage: 400 MG, QD
     Route: 048
     Dates: start: 20190502, end: 20190504
  16. DIAZEPAM. [Concomitant]
     Active Substance: DIAZEPAM
     Dosage: 2 MG, BID
     Route: 048
     Dates: start: 20190506, end: 20190612
  17. YOUNGPROMA [Concomitant]
     Dosage: 2.5 MG, BID
     Route: 048
     Dates: start: 20190505, end: 20190512
  18. ARIPIPRAZOLE (DUAL CHAMBER) [Suspect]
     Active Substance: ARIPIPRAZOLE
     Indication: SCHIZOPHRENIA
     Dosage: 400 MG, UNK
     Route: 030
     Dates: start: 20190426, end: 20190426
  19. AMISULPRIDE [Concomitant]
     Active Substance: AMISULPRIDE
     Dosage: UNK
     Route: 065
     Dates: start: 20190427, end: 20190501
  20. PERIDOL [Concomitant]
     Active Substance: HALOPERIDOL
     Indication: PSYCHOTIC SYMPTOM
     Dosage: 1.5 MG, QD
     Route: 048
     Dates: start: 20150523, end: 20190506

REACTIONS (3)
  - Abdominal pain [Recovered/Resolved]
  - Headache [Recovered/Resolved]
  - Hallucination [Recovered/Resolved]

NARRATIVE: CASE EVENT DATE: 20190502
